FAERS Safety Report 7365714-2 (Version None)
Quarter: 2011Q1

REPORT INFORMATION
  Report Type: 
  Country: None (occurrence: None)
  Receive Date: 20110322
  Receipt Date: 20110316
  Transmission Date: 20110831
  Serious: No
  Sender: FDA-Public Use
  Company Number: US-PFIZER INC-2011058561

PATIENT
  Sex: Female
  Weight: 52.154 kg

DRUGS (3)
  1. CODEINE [Interacting]
     Indication: COUGH
     Dosage: UNK
     Route: 048
     Dates: start: 20110215, end: 20110217
  2. ZITHROMAX [Interacting]
     Indication: PHARYNGITIS STREPTOCOCCAL
     Dosage: UNK
     Route: 048
     Dates: start: 20110215, end: 20110220
  3. PREDNISONE [Suspect]
     Indication: RASH PRURITIC
     Dosage: THREE TABLETS DAILY
     Route: 048
     Dates: start: 20110201, end: 20110101

REACTIONS (5)
  - DRUG INTERACTION [None]
  - ABDOMINAL DISCOMFORT [None]
  - VOMITING [None]
  - RASH PRURITIC [None]
  - MALAISE [None]
